FAERS Safety Report 8986720 (Version 1)
Quarter: 2012Q4

REPORT INFORMATION
  Report Type: 
  Country: GB (occurrence: GB)
  Receive Date: 20121227
  Receipt Date: 20121227
  Transmission Date: 20130627
  Serious: Yes (Life-Threatening, Hospitalization, Other)
  Sender: FDA-Public Use
  Company Number: PHFR2012GB006621

PATIENT
  Age: 58 Year
  Sex: Male

DRUGS (11)
  1. EXJADE [Suspect]
     Indication: IRON OVERLOAD
     Dosage: 1750 mg
     Route: 048
     Dates: end: 20121202
  2. WARFARIN [Concomitant]
     Indication: DEEP VEIN THROMBOSIS
     Dosage: Life long
  3. CLENIL MODULITE [Concomitant]
  4. VITAMIN B COMPLEX [Concomitant]
  5. DIPROBASE                          /01132701/ [Concomitant]
  6. GLYCERYL TRINITRATE [Concomitant]
  7. HYOSCINE BUTYLBROMIDE [Concomitant]
  8. SIMVASTATIN [Concomitant]
  9. RAMIPRIL [Concomitant]
  10. ALVERINE [Concomitant]
  11. SALBUTAMOL [Concomitant]

REACTIONS (5)
  - Duodenal ulcer perforation [Recovering/Resolving]
  - Pancytopenia [Unknown]
  - Medication error [Unknown]
  - Peritonitis [Unknown]
  - Abdominal pain upper [Unknown]
